FAERS Safety Report 13679050 (Version 1)
Quarter: 2017Q2

REPORT INFORMATION
  Report Type: Report from Study
  Country: JP (occurrence: JP)
  Receive Date: 20170622
  Receipt Date: 20170622
  Transmission Date: 20170830
  Serious: Yes (Hospitalization)
  Sender: FDA-Public Use
  Company Number: JP-JNJFOC-20170612670

PATIENT

DRUGS (2)
  1. METHOTREXATE. [Concomitant]
     Active Substance: METHOTREXATE
     Dosage: MEAN 8.9 MG/WEEK
     Route: 065
  2. INFLIXIMAB, RECOMBINANT [Suspect]
     Active Substance: INFLIXIMAB
     Indication: RHEUMATOID ARTHRITIS
     Route: 042

REACTIONS (8)
  - Arthritis bacterial [Unknown]
  - Pneumonia viral [Unknown]
  - Pyelonephritis [Unknown]
  - Tonsillitis [Unknown]
  - Pneumocystis jirovecii pneumonia [Unknown]
  - Cellulitis [Unknown]
  - Pneumonia bacterial [Unknown]
  - Mycobacterial infection [Unknown]
